FAERS Safety Report 12541381 (Version 2)
Quarter: 2016Q3

REPORT INFORMATION
  Report Type: Spontaneous
  Country: US (occurrence: US)
  Receive Date: 20160708
  Receipt Date: 20160709
  Transmission Date: 20161109
  Serious: Yes (Other)
  Sender: FDA-Public Use
  Company Number: US-JNJFOC-20160625901

PATIENT
  Age: 12 Year
  Sex: Female
  Weight: 43 kg

DRUGS (1)
  1. TYLENOL EXTRA STRENGTH [Suspect]
     Active Substance: ACETAMINOPHEN
     Indication: PRODUCT USED FOR UNKNOWN INDICATION
     Dosage: AMOUNT OF EXPOSURE 7G.??DURATION WAS }24HOUR{=1 WEEK
     Route: 048

REACTIONS (3)
  - Transaminases increased [Unknown]
  - Incorrect dose administered [Unknown]
  - Toxicity to various agents [Unknown]
